FAERS Safety Report 10615474 (Version 1)
Quarter: 2014Q4

REPORT INFORMATION
  Report Type: Spontaneous
  Country: US (occurrence: None)
  Receive Date: 20141125
  Receipt Date: 20141125
  Transmission Date: 20150529
  Serious: Yes (Disabling)
  Sender: FDA-Public Use
  Company Number: None

PATIENT
  Age: 63 Year
  Sex: Female
  Weight: 38.1 kg

DRUGS (2)
  1. NEURONTIN [Suspect]
     Active Substance: GABAPENTIN
     Indication: NERVE INJURY
     Dosage: 3XDAY
  2. NEURONTIN [Suspect]
     Active Substance: GABAPENTIN
     Indication: POST POLIO SYNDROME
     Dosage: 3XDAY

REACTIONS (4)
  - Condition aggravated [None]
  - Quality of life decreased [None]
  - Agitation [None]
  - Memory impairment [None]

NARRATIVE: CASE EVENT DATE: 20141105
